FAERS Safety Report 10784968 (Version 1)
Quarter: 2015Q1

REPORT INFORMATION
  Report Type: Spontaneous
  Country: US (occurrence: US)
  Receive Date: 20150211
  Receipt Date: 20150211
  Transmission Date: 20150721
  Serious: No
  Sender: FDA-Public Use
  Company Number: US-GLAXOSMITHKLINE-A1065442A

PATIENT

DRUGS (1)
  1. LAMICTAL [Suspect]
     Active Substance: LAMOTRIGINE
     Indication: NERVOUS SYSTEM DISORDER
     Dosage: 100 MG TABLETS, UNKNOWN DOSING
     Route: 065

REACTIONS (4)
  - Hypertension [Unknown]
  - Adverse event [Unknown]
  - Glucose tolerance impaired [Unknown]
  - Ulcer [Unknown]
